FAERS Safety Report 5739292-5 (Version None)
Quarter: 2008Q2

REPORT INFORMATION
  Report Type: 
  Country: None (occurrence: None)
  Receive Date: 20080515
  Receipt Date: 20080506
  Transmission Date: 20081010
  Serious: Yes (Other)
  Sender: FDA-Public Use
  Company Number: US-JNJFOC-20080502049

PATIENT
  Sex: Female
  Weight: 90.72 kg

DRUGS (8)
  1. MOTRIN [Suspect]
  2. MOTRIN [Suspect]
     Indication: ARTHRITIS
  3. IBUPROFEN TABLETS [Suspect]
     Indication: ARTHRITIS
  4. OXYCONTIN [Concomitant]
  5. MEPROBAMATE [Concomitant]
  6. LEVOXYL [Concomitant]
  7. GABITRIL [Concomitant]
  8. UNSPECIFIED STOMACH MEDICATIONS [Concomitant]

REACTIONS (8)
  - CHRONIC OBSTRUCTIVE PULMONARY DISEASE [None]
  - DRUG INEFFECTIVE [None]
  - FIBROMYALGIA [None]
  - GASTRIC DISORDER [None]
  - HERPES ZOSTER [None]
  - HIATUS HERNIA [None]
  - MYALGIA [None]
  - PNEUMONIA [None]
